FAERS Safety Report 9832355 (Version 2)
Quarter: 2014Q2

REPORT INFORMATION
  Report Type: Spontaneous
  Country: US (occurrence: US)
  Receive Date: 20140121
  Receipt Date: 20140404
  Transmission Date: 20141212
  Serious: Yes (Death, Other)
  Sender: FDA-Public Use
  Company Number: US-GILEAD-2014-0092646

PATIENT
  Sex: Male
  Weight: 92.52 kg

DRUGS (17)
  1. LETAIRIS [Suspect]
     Indication: PULMONARY ARTERIAL HYPERTENSION
     Dosage: 10 MG, QD
     Route: 048
     Dates: start: 20120921
  2. WARFARIN SODIUM [Concomitant]
     Indication: PULMONARY HYPERTENSION
     Dosage: UNK
  3. FLOVENT [Concomitant]
     Indication: CHRONIC OBSTRUCTIVE PULMONARY DISEASE
     Dosage: UNK
  4. SPIRIVA [Concomitant]
     Indication: CHRONIC OBSTRUCTIVE PULMONARY DISEASE
     Dosage: UNK
  5. FLOMAX                             /01280302/ [Concomitant]
  6. ACIPHEX [Concomitant]
  7. SINGULAIR [Concomitant]
  8. LASIX                              /00032601/ [Concomitant]
     Dosage: UNK
  9. FINASTERIDE [Concomitant]
  10. POTASSIUM [Concomitant]
  11. PERFOROMIST [Concomitant]
     Dosage: UNK
  12. PRAVACHOL [Concomitant]
     Dosage: UNK
  13. OMEPRAZOLE [Concomitant]
     Dosage: UNK
  14. REVATIO [Concomitant]
     Dosage: UNK
  15. HYDROCODONE W/APAP                 /00607101/ [Concomitant]
     Dosage: UNK
  16. TAMSULOSIN [Concomitant]
     Dosage: UNK
  17. MUCINEX D [Concomitant]
     Dosage: UNK

REACTIONS (1)
  - Pulmonary hypertension [Fatal]
